FAERS Safety Report 17290485 (Version 1)
Quarter: 2020Q1

REPORT INFORMATION
  Report Type: Spontaneous
  Country: ES (occurrence: ES)
  Receive Date: 20200121
  Receipt Date: 20200121
  Transmission Date: 20200409
  Serious: Yes (Other)
  Sender: FDA-Public Use
  Company Number: ES-SUN PHARMACEUTICAL INDUSTRIES LTD-2020RR-233573

PATIENT
  Age: 82 Year
  Sex: Female
  Weight: 67 kg

DRUGS (12)
  1. DELTIUS [Suspect]
     Active Substance: CHOLECALCIFEROL
     Indication: PRODUCT USED FOR UNKNOWN INDICATION
     Dosage: 1 DF (EVERY 15 DAYS)
     Route: 065
     Dates: start: 201802
  2. FOSFOCINA [Suspect]
     Active Substance: FOSFOMYCIN SODIUM
     Indication: URINARY TRACT INFECTION
     Dosage: 1 DF, QHS (DINNER)
     Route: 065
     Dates: start: 201802
  3. OMEPRAZOLE. [Suspect]
     Active Substance: OMEPRAZOLE
     Indication: PRODUCT USED FOR UNKNOWN INDICATION
     Dosage: 1 DF, QD, GASTRO-RESISTANT CAPSULE, HARD
     Route: 048
     Dates: start: 2014
  4. LORMETAZEPAM [Suspect]
     Active Substance: LORMETAZEPAM
     Indication: PRODUCT USED FOR UNKNOWN INDICATION
     Dosage: 1 DF, QD (DINNER)
     Route: 065
     Dates: start: 2016
  5. DILIBAN [Suspect]
     Active Substance: ACETAMINOPHEN\TRAMADOL HYDROCHLORIDE
     Indication: PRODUCT USED FOR UNKNOWN INDICATION
     Dosage: 3 DF, QD (BREAKFAST/LUNCH/DINNER)
     Route: 065
     Dates: start: 201802
  6. SIMVASTATINA [Suspect]
     Active Substance: SIMVASTATIN
     Indication: ANGINA PECTORIS
     Dosage: 1 DF, QD (DINNER)
     Route: 065
     Dates: start: 2014
  7. BRINTELLIX [Suspect]
     Active Substance: VORTIOXETINE HYDROBROMIDE
     Indication: PRODUCT USED FOR UNKNOWN INDICATION
     Dosage: 1 DF, QD (LUNCH)
     Route: 065
     Dates: start: 201802
  8. ENALAPRIL,HYDROCHLOROTHIAZIDE [Suspect]
     Active Substance: ENALAPRIL MALEATE\HYDROCHLOROTHIAZIDE
     Indication: CARDIAC FAILURE CHRONIC
     Dosage: 1 DF, QD (BREAKFAST)
     Route: 065
     Dates: start: 2017
  9. BISOPROLOL [Suspect]
     Active Substance: BISOPROLOL
     Indication: CARDIAC FAILURE CHRONIC
     Dosage: 0.5 DF, QD (BREAKFAST)
     Route: 065
     Dates: start: 2016
  10. MINITRAN [Suspect]
     Active Substance: NITROGLYCERIN
     Indication: ANGINA PECTORIS
     Dosage: 1 DF, QD
     Route: 062
     Dates: start: 2014
  11. SINTROM [Suspect]
     Active Substance: ACENOCOUMAROL
     Indication: ANGINA PECTORIS
     Dosage: UNK UNK, QD (LUNCH) ()
     Route: 065
     Dates: start: 2014
  12. SEGURIL [Suspect]
     Active Substance: FUROSEMIDE
     Indication: ANGINA PECTORIS
     Dosage: 0.5 DF, QD  (BREAKFAST)
     Route: 065
     Dates: start: 2016

REACTIONS (12)
  - Gingival bleeding [Unknown]
  - Feeling abnormal [Unknown]
  - Urinary tract infection [Unknown]
  - Bone pain [Unknown]
  - Product storage error [Unknown]
  - Insomnia [Unknown]
  - Nervousness [Unknown]
  - Arthralgia [Unknown]
  - Cardiac failure chronic [Unknown]
  - Vomiting [Unknown]
  - Fatigue [Unknown]
  - Nausea [Unknown]

NARRATIVE: CASE EVENT DATE: 2017
